FAERS Safety Report 13780916 (Version 1)
Quarter: 2017Q3

REPORT INFORMATION
  Report Type: Spontaneous
  Country: US (occurrence: US)
  Receive Date: 20170722
  Receipt Date: 20170722
  Transmission Date: 20171127
  Serious: Yes (Other)
  Sender: FDA-Public Use
  Company Number: None

PATIENT
  Sex: Female

DRUGS (15)
  1. QNASL [Concomitant]
     Active Substance: BECLOMETHASONE DIPROPIONATE
  2. PRADAXA [Suspect]
     Active Substance: DABIGATRAN ETEXILATE MESYLATE
     Indication: ATRIAL FIBRILLATION
     Dosage: ?          OTHER DOSE:MG;?
     Route: 048
  3. REQUIP [Concomitant]
     Active Substance: ROPINIROLE HYDROCHLORIDE
  4. HCTZ [Concomitant]
     Active Substance: HYDROCHLOROTHIAZIDE
  5. ARMOUR THYROID [Concomitant]
     Active Substance: THYROID, PORCINE
  6. ASPIRIN. [Concomitant]
     Active Substance: ASPIRIN
  7. GLUMETZA [Concomitant]
     Active Substance: METFORMIN HYDROCHLORIDE
  8. PANTOPRAZOLE [Concomitant]
     Active Substance: PANTOPRAZOLE
  9. SYNTHROID [Concomitant]
     Active Substance: LEVOTHYROXINE SODIUM
  10. VENTOLIN [Concomitant]
     Active Substance: ALBUTEROL SULFATE
  11. ADVAIR DISKUS [Concomitant]
     Active Substance: FLUTICASONE PROPIONATE\SALMETEROL XINAFOATE
  12. BYSTOLIC [Concomitant]
     Active Substance: NEBIVOLOL HYDROCHLORIDE
  13. COZAAR [Concomitant]
     Active Substance: LOSARTAN POTASSIUM
  14. TRAMADOL. [Concomitant]
     Active Substance: TRAMADOL
  15. BYETTA [Concomitant]
     Active Substance: EXENATIDE

REACTIONS (2)
  - Asthma [None]
  - Drug ineffective [None]
